FAERS Safety Report 20456020 (Version 1)
Quarter: 2022Q1

REPORT INFORMATION
  Report Type: Spontaneous
  Country: NO (occurrence: NO)
  Receive Date: 20220210
  Receipt Date: 20220210
  Transmission Date: 20220423
  Serious: Yes (Other)
  Sender: FDA-Public Use
  Company Number: None

PATIENT
  Age: 40 Year
  Sex: Female
  Weight: 57 kg

DRUGS (3)
  1. MIRENA [Suspect]
     Active Substance: LEVONORGESTREL
     Indication: Contraception
     Dosage: 20?G/DAY
     Route: 015
     Dates: start: 20211216
  2. ACETAMINOPHEN [Concomitant]
     Active Substance: ACETAMINOPHEN
     Indication: Intra-uterine contraceptive device insertion
     Dosage: 500 MG, QD
     Route: 048
     Dates: start: 20211216, end: 20211216
  3. ACETAMINOPHEN [Concomitant]
     Active Substance: ACETAMINOPHEN
     Indication: Discomfort

REACTIONS (4)
  - Syncope [Recovering/Resolving]
  - Malaise [Recovering/Resolving]
  - Procedural dizziness [Recovering/Resolving]
  - Complication of device insertion [Recovering/Resolving]

NARRATIVE: CASE EVENT DATE: 20211216
